FAERS Safety Report 18567079 (Version 1)
Quarter: 2020Q4

REPORT INFORMATION
  Report Type: Spontaneous
  Country: US (occurrence: US)
  Receive Date: 20201201
  Receipt Date: 20201201
  Transmission Date: 20210114
  Serious: Yes (Other)
  Sender: FDA-Public Use
  Company Number: US-PURDUE-USA-2020-0169354

PATIENT
  Sex: Male

DRUGS (16)
  1. TRAMADOL. [Suspect]
     Active Substance: TRAMADOL
     Indication: BACK PAIN
     Dosage: UNK
     Route: 065
  2. METHAMPHETAMINE [Suspect]
     Active Substance: METHAMPHETAMINE
     Indication: FIBROMYALGIA
  3. TRAMADOL. [Suspect]
     Active Substance: TRAMADOL
     Indication: FIBROMYALGIA
  4. FENTANYL. [Suspect]
     Active Substance: FENTANYL
     Indication: FIBROMYALGIA
  5. HEROIN [Suspect]
     Active Substance: DIAMORPHINE
     Indication: BACK PAIN
     Dosage: UNK
     Route: 065
  6. OXYCONTIN [Suspect]
     Active Substance: OXYCODONE HYDROCHLORIDE
     Indication: FIBROMYALGIA
  7. BUTRANS [Suspect]
     Active Substance: BUPRENORPHINE
     Indication: FIBROMYALGIA
  8. METHAMPHETAMINE [Suspect]
     Active Substance: METHAMPHETAMINE
     Indication: BACK PAIN
     Dosage: UNK
     Route: 065
  9. COCAINE [Suspect]
     Active Substance: COCAINE
     Indication: FIBROMYALGIA
  10. OXYCONTIN [Suspect]
     Active Substance: OXYCODONE HYDROCHLORIDE
     Indication: BACK PAIN
     Dosage: UNK
     Route: 048
  11. LORTAB [Suspect]
     Active Substance: ACETAMINOPHEN\HYDROCODONE BITARTRATE
     Indication: FIBROMYALGIA
  12. HEROIN [Suspect]
     Active Substance: DIAMORPHINE
     Indication: FIBROMYALGIA
  13. BUTRANS [Suspect]
     Active Substance: BUPRENORPHINE
     Indication: BACK PAIN
     Dosage: UNK
     Route: 062
  14. LORTAB [Suspect]
     Active Substance: ACETAMINOPHEN\HYDROCODONE BITARTRATE
     Indication: BACK PAIN
     Dosage: UNK
     Route: 065
  15. COCAINE [Suspect]
     Active Substance: COCAINE
     Indication: BACK PAIN
     Dosage: UNK
     Route: 065
  16. FENTANYL. [Suspect]
     Active Substance: FENTANYL
     Indication: BACK PAIN
     Dosage: UNK
     Route: 065

REACTIONS (6)
  - Alcoholism [Unknown]
  - Overdose [Unknown]
  - Drug abuse [Unknown]
  - Drug dependence [Unknown]
  - Drug withdrawal syndrome [Unknown]
  - Illness [Unknown]
